FAERS Safety Report 15113690 (Version 1)
Quarter: 2018Q3

REPORT INFORMATION
  Report Type: Report from Study
  Country: CN (occurrence: CN)
  Receive Date: 20180706
  Receipt Date: 20180706
  Transmission Date: 20181010
  Serious: Yes (Other)
  Sender: FDA-Public Use
  Company Number: CN-ROCHE-2146798

PATIENT

DRUGS (2)
  1. CAPECITABINE. [Suspect]
     Active Substance: CAPECITABINE
     Indication: PANCREATIC CARCINOMA
     Dosage: DAY1 AND 8 PER ONE CYCLE. 28 DAYS PER CYCLE.
     Route: 041
  2. TEGAFUR [Suspect]
     Active Substance: TEGAFUR
     Indication: PANCREATIC CARCINOMA
     Dosage: TAKEN FOR 3 WEEKS AND DISCONTINUED FOR 1 WEEK.
     Route: 048

REACTIONS (5)
  - Gastrointestinal disorder [Unknown]
  - Renal injury [Unknown]
  - Alopecia [Unknown]
  - Neurotoxicity [Unknown]
  - Bone marrow failure [Unknown]
